FAERS Safety Report 6045928-4 (Version None)
Quarter: 2009Q1

REPORT INFORMATION
  Report Type: 
  Country: None (occurrence: None)
  Receive Date: 20090116
  Receipt Date: 20090108
  Transmission Date: 20090719
  Serious: Yes (Hospitalization)
  Sender: FDA-Public Use
  Company Number: 111425

PATIENT
  Age: 37 Year
  Sex: Male

DRUGS (5)
  1. NAPROXEN SODIUM [Suspect]
     Dosage: / ORAL
     Route: 048
  2. LORAZEPAM [Suspect]
  3. OXAZEPAM [Concomitant]
  4. BACLOFEN [Concomitant]
  5. ETHANOL [Concomitant]

REACTIONS (6)
  - ASPARTATE AMINOTRANSFERASE INCREASED [None]
  - GAMMA-GLUTAMYLTRANSFERASE INCREASED [None]
  - HYPERBILIRUBINAEMIA [None]
  - LABORATORY TEST INTERFERENCE [None]
  - OVERDOSE [None]
  - SUICIDE ATTEMPT [None]
